FAERS Safety Report 4470776-6 (Version None)
Quarter: 2004Q4

REPORT INFORMATION
  Report Type: 
  Country: None (occurrence: None)
  Receive Date: 20041007
  Receipt Date: 20041007
  Transmission Date: 20050328
  Serious: Yes (Hospitalization)
  Sender: FDA-Public Use
  Company Number: None

PATIENT
  Sex: Female
  Weight: 54.8852 kg

DRUGS (2)
  1. AREDIA [Suspect]
     Indication: BREAST CANCER
  2. AREDIA [Suspect]
     Indication: METASTASES TO BONE

REACTIONS (4)
  - BONE DISORDER [None]
  - JAW FRACTURE [None]
  - OSTEOMYELITIS [None]
  - PATHOLOGICAL FRACTURE [None]
